FAERS Safety Report 8530077-3 (Version None)
Quarter: 2012Q3

REPORT INFORMATION
  Report Type: 
  Country: None (occurrence: None)
  Receive Date: 20120723
  Receipt Date: 20120718
  Transmission Date: 20120928
  Serious: Yes (Hospitalization, Other)
  Sender: FDA-Public Use
  Company Number: PHEH2005US10681

PATIENT
  Sex: Female
  Weight: 50.34 kg

DRUGS (25)
  1. DECADRON [Concomitant]
  2. MORPHINE SULFATE [Concomitant]
     Indication: PAIN MANAGEMENT
  3. STOOL SOFTENER [Concomitant]
  4. HERCEPTIN [Concomitant]
  5. TAGAMET [Concomitant]
  6. AMITRIPTYLINE HCL [Concomitant]
  7. BENADRYL ^PFIZER WARNER-LAMBERT^ [Concomitant]
  8. TEMAZEPAM [Concomitant]
  9. XANAX [Concomitant]
  10. TAMOXIFEN CITRATE [Concomitant]
     Route: 048
     Dates: start: 19950101
  11. ZOMETA [Suspect]
     Dosage: 4 MG, QMO
     Route: 042
     Dates: start: 20031001, end: 20050315
  12. PROZAC [Concomitant]
  13. URO-MAG [Concomitant]
     Indication: BLOOD MAGNESIUM DECREASED
     Dates: start: 20040501
  14. BENTYL [Concomitant]
  15. LAXATIVES [Concomitant]
  16. NAVELBINE [Concomitant]
  17. FEMARA [Concomitant]
  18. TAXOL [Concomitant]
  19. POTASSIUM CHLORIDE [Concomitant]
  20. COUMADIN [Concomitant]
  21. PHENERGAN HCL [Concomitant]
  22. LOMOTIL [Concomitant]
  23. STRESS FORMULA MULTI B COMPLEX W/C 500 [Concomitant]
  24. CALCIUM WITH VITAMIN D [Concomitant]
  25. SORBITOL 50PC INJ [Concomitant]

REACTIONS (37)
  - ORAL DISORDER [None]
  - NEOPLASM MALIGNANT [None]
  - DIARRHOEA [None]
  - ASCITES [None]
  - MUSCULOSKELETAL PAIN [None]
  - DIZZINESS [None]
  - METASTASES TO LUNG [None]
  - GINGIVAL ERYTHEMA [None]
  - CHEST PAIN [None]
  - DEPRESSION [None]
  - TACHYCARDIA [None]
  - HYPOXIA [None]
  - METASTASES TO BONE [None]
  - OSTEOMYELITIS [None]
  - ORTHOSTATIC HYPOTENSION [None]
  - HEADACHE [None]
  - OSTEOPENIA [None]
  - BACK PAIN [None]
  - ASTHENIA [None]
  - BLOOD MAGNESIUM DECREASED [None]
  - SMALL INTESTINAL OBSTRUCTION [None]
  - CHRONIC OBSTRUCTIVE PULMONARY DISEASE [None]
  - BRONCHIECTASIS [None]
  - OSTEONECROSIS OF JAW [None]
  - NAUSEA [None]
  - DELIRIUM [None]
  - AORTIC CALCIFICATION [None]
  - PNEUMONIA [None]
  - CONSTIPATION [None]
  - METASTASES TO PERITONEUM [None]
  - PULMONARY EMBOLISM [None]
  - SOFT TISSUE INFLAMMATION [None]
  - PAIN IN JAW [None]
  - VOMITING [None]
  - ILEUS [None]
  - EMPHYSEMA [None]
  - PLEURAL EFFUSION [None]
